FAERS Safety Report 6128670-0 (Version None)
Quarter: 2009Q1

REPORT INFORMATION
  Report Type: 
  Country: None (occurrence: None)
  Receive Date: 20090323
  Receipt Date: 20090311
  Transmission Date: 20090719
  Serious: Yes (Other)
  Sender: FDA-Public Use
  Company Number: JP-PFIZER INC-2009182936

PATIENT

DRUGS (3)
  1. HALCION [Suspect]
     Dosage: 0.25 MG/DAY
     Route: 048
     Dates: end: 20090310
  2. OXYCONTIN [Suspect]
     Route: 048
     Dates: end: 20090310
  3. DEPAS [Concomitant]
     Route: 048
     Dates: end: 20090310

REACTIONS (1)
  - RESPIRATORY DEPRESSION [None]
